FAERS Safety Report 4937544-X (Version None)
Quarter: 2006Q1

REPORT INFORMATION
  Report Type: 
  Country: None (occurrence: None)
  Receive Date: 20060309
  Receipt Date: 20051205
  Transmission Date: 20060701
  Serious: Yes (Death, Hospitalization, Other)
  Sender: FDA-Public Use
  Company Number: US-MERCK-0512USA00684

PATIENT
  Age: 50 Year
  Sex: Male
  Weight: 114 kg

DRUGS (10)
  1. ASPIRIN [Concomitant]
     Route: 065
  2. NITROGLYCERIN [Concomitant]
     Route: 065
  3. FUROSEMIDE [Concomitant]
     Route: 065
  4. AUGMENTIN '125' [Concomitant]
     Route: 065
  5. NAPROXEN [Concomitant]
     Route: 065
  6. DIGOXIN [Concomitant]
     Route: 065
  7. ATENOLOL [Concomitant]
     Route: 065
  8. LISINOPRIL [Concomitant]
     Route: 065
  9. VIOXX [Suspect]
     Indication: PAIN
     Route: 048
     Dates: end: 20031222
  10. INSULIN [Concomitant]
     Route: 065

REACTIONS (5)
  - CEREBROVASCULAR DISORDER [None]
  - CHEST PAIN [None]
  - DEPRESSION [None]
  - MYOCARDIAL INFARCTION [None]
  - OVERDOSE [None]
